FAERS Safety Report 14502014 (Version 4)
Quarter: 2018Q2

REPORT INFORMATION
  Report Type: Report from Study
  Country: DE (occurrence: DE)
  Receive Date: 20180208
  Receipt Date: 20180604
  Transmission Date: 20180711
  Serious: Yes (Hospitalization, Other)
  Sender: FDA-Public Use
  Company Number: DE-BRISTOL-MYERS SQUIBB COMPANY-19166701

PATIENT
  Age: 56 Year
  Sex: Female

DRUGS (4)
  1. ABATACEPT [Suspect]
     Active Substance: ABATACEPT
     Indication: RHEUMATOID ARTHRITIS
     Dosage: INTERRUPTED ON 21JAN2013
     Route: 042
     Dates: start: 201103
  2. ABATACEPT [Suspect]
     Active Substance: ABATACEPT
     Indication: RHEUMATOID ARTHRITIS
     Route: 065
  3. ETORICOXIB [Concomitant]
     Active Substance: ETORICOXIB
     Indication: PRODUCT USED FOR UNKNOWN INDICATION
     Route: 065
  4. PREGABALIN. [Concomitant]
     Active Substance: PREGABALIN
     Indication: PRODUCT USED FOR UNKNOWN INDICATION
     Route: 065

REACTIONS (7)
  - Infectious pleural effusion [Recovered/Resolved]
  - Sepsis [Recovered/Resolved]
  - Pyelonephritis [Recovered/Resolved]
  - Diverticulum [Unknown]
  - Pleural effusion [Recovered/Resolved]
  - Cerebral infarction [Recovered/Resolved]
  - Urinary tract infection [Recovered/Resolved]

NARRATIVE: CASE EVENT DATE: 20130123
